FAERS Safety Report 7650706-6 (Version None)
Quarter: 2011Q3

REPORT INFORMATION
  Report Type: 
  Country: None (occurrence: None)
  Receive Date: 20110802
  Receipt Date: 20110720
  Transmission Date: 20111222
  Serious: Yes (Other)
  Sender: FDA-Public Use
  Company Number: US-ASTRAZENECA-2008UW11356

PATIENT
  Age: 14269 Day
  Sex: Male
  Weight: 106.6 kg

DRUGS (20)
  1. SEROQUEL [Suspect]
     Indication: SLEEP DISORDER
     Dosage: 100 TO 300MG
     Route: 048
     Dates: start: 20000711, end: 20070425
  2. PAXIL [Concomitant]
     Dates: start: 20020506, end: 20030911
  3. EFFEXOR [Concomitant]
     Dates: start: 20000501
  4. PAXIL [Concomitant]
     Dates: start: 20001122, end: 20010219
  5. XANAX [Concomitant]
     Dates: start: 20030818
  6. NEURONTIN [Concomitant]
     Dosage: 800 MG 2 P.O. T.I.D.
     Dates: start: 20000908
  7. CLONIDINE [Concomitant]
     Dosage: 0.1 MG 1/2 P.O. B.I.D.
     Dates: start: 20010926
  8. PROZAC [Concomitant]
     Dosage: 20 TO 30 MG DAILY
     Route: 048
     Dates: start: 20000229, end: 20001201
  9. WELLBUTRIN [Concomitant]
     Dates: start: 20000601, end: 20010301
  10. ZOLOFT [Concomitant]
     Dates: start: 20011008, end: 20020413
  11. DEPAKOTE [Concomitant]
     Dosage: 500 TO 1000 MG DAILY
     Route: 048
     Dates: start: 20000908
  12. NEURONTIN [Concomitant]
     Dosage: 600 MG P. O T.I.D
     Dates: start: 20000908
  13. LEVAQUIN [Concomitant]
     Dosage: 500 MG ONE P.O. Q. DAY
     Dates: start: 20000908
  14. DEPAKOTE [Concomitant]
     Dosage: 500 MG 4 P.O. Q.H.S.
  15. OXYCONTIN [Concomitant]
     Indication: PAIN
     Dosage: 20 MG P.O. B.I.D. P.R.N. PAIN
     Dates: start: 20000908
  16. STARLIX [Concomitant]
     Dosage: 60 MG BEFORE MEALS 1 P.O. T.I.D
     Dates: start: 20000926
  17. SEROQUEL [Suspect]
     Dosage: 100 TO 200 MG AT NIGHT
     Route: 048
     Dates: start: 20000908
  18. ZYPREXA [Concomitant]
     Dates: start: 20040324, end: 20040525
  19. LORTAB [Concomitant]
     Dosage: 7.5 MG ONE P.O. Q.
     Dates: start: 20000908
  20. SONATA [Concomitant]
     Dosage: 10 MG AT BED TIME
     Dates: start: 20010926

REACTIONS (8)
  - ANXIETY [None]
  - TYPE 2 DIABETES MELLITUS [None]
  - BLOOD CHOLESTEROL INCREASED [None]
  - CRANIOCEREBRAL INJURY [None]
  - RENAL FAILURE [None]
  - OBESITY [None]
  - BLOOD TRIGLYCERIDES INCREASED [None]
  - HYPERLIPIDAEMIA [None]
